FAERS Safety Report 18065875 (Version 3)
Quarter: 2020Q3

REPORT INFORMATION
  Report Type: Spontaneous
  Country: CL (occurrence: CL)
  Receive Date: 20200724
  Receipt Date: 20200929
  Transmission Date: 20201103
  Serious: Yes (Hospitalization, Other)
  Sender: FDA-Public Use
  Company Number: CL-009507513-2007CHL008916

PATIENT

DRUGS (1)
  1. KEYTRUDA [Suspect]
     Active Substance: PEMBROLIZUMAB
     Indication: NON-SMALL CELL LUNG CANCER METASTATIC

REACTIONS (8)
  - Dysarthria [Unknown]
  - Electrolyte imbalance [Unknown]
  - Asthenia [Unknown]
  - Neurological symptom [Unknown]
  - COVID-19 [Unknown]
  - Adrenal insufficiency [Unknown]
  - Therapy partial responder [Unknown]
  - Bradyphrenia [Unknown]
